FAERS Safety Report 19378597 (Version 2)
Quarter: 2021Q3

REPORT INFORMATION
  Report Type: Spontaneous
  Country: US (occurrence: US)
  Receive Date: 20210606
  Receipt Date: 20210707
  Transmission Date: 20211014
  Serious: No
  Sender: FDA-Public Use
  Company Number: US-ASTRAZENECA-2021A466325

PATIENT
  Age: 29027 Day
  Sex: Male
  Weight: 81.6 kg

DRUGS (3)
  1. BYDUREON [Suspect]
     Active Substance: EXENATIDE
     Indication: TYPE 2 DIABETES MELLITUS
     Route: 058
  2. MEDICATIONS [Concomitant]
     Active Substance: UNSPECIFIED INGREDIENT
     Dosage: UNKNOWN
     Route: 065
  3. BYDUREON BCISE [Suspect]
     Active Substance: EXENATIDE
     Indication: TYPE 2 DIABETES MELLITUS
     Route: 058

REACTIONS (5)
  - Incorrect dose administered by device [Not Recovered/Not Resolved]
  - Device delivery system issue [Unknown]
  - Injection site pain [Not Recovered/Not Resolved]
  - Device issue [Unknown]
  - Injection site haemorrhage [Unknown]

NARRATIVE: CASE EVENT DATE: 20210520
